FAERS Safety Report 26128780 (Version 2)
Quarter: 2025Q4

REPORT INFORMATION
  Report Type: Report from Study
  Country: CA (occurrence: CA)
  Receive Date: 20251208
  Receipt Date: 20251222
  Transmission Date: 20260118
  Serious: Yes (Hospitalization, Other)
  Sender: TOLMAR
  Company Number: CA-20251126-1a36c3, TLM-2025-09218(0)

PATIENT
  Age: 76 Year
  Sex: Male

DRUGS (7)
  1. ELIGARD [Suspect]
     Active Substance: LEUPROLIDE ACETATE
     Indication: Prostate cancer
     Dosage: 30 MG, EVERY 4 MONTHS
     Route: 058
     Dates: start: 20190620
  2. ELIGARD [Suspect]
     Active Substance: LEUPROLIDE ACETATE
     Dosage: 30 MG, EVERY 4 MONTHS
     Route: 058
     Dates: start: 20251126
  3. ELIGARD [Suspect]
     Active Substance: LEUPROLIDE ACETATE
     Indication: Prostate cancer
  4. X-tandi [Concomitant]
     Indication: Product used for unknown indication
     Dosage: HIS ERLEADA MEDICATION HAS BEEN CHANGED FOR X-TANDI
  5. METOPROLOL [Concomitant]
     Active Substance: METOPROLOL
     Indication: Product used for unknown indication
     Dosage: HAS BEEN TAKING SOTALOL SINCE 2021 WHICH HAS NOW BEEN CHANGED FOR METOPROLOL
  6. METOPROLOL [Concomitant]
     Active Substance: METOPROLOL
     Dosage: DOSAGE ADJUSTMENT (REDUCED BY HALF)
     Dates: start: 20251120
  7. SOTALOL [Concomitant]
     Active Substance: SOTALOL
     Indication: Product used for unknown indication
     Dosage: HAS BEEN TAKING SOTALOL SINCE 2021 WHICH HAS NOW BEEN CHANGED FOR METOPROLOL
     Dates: start: 2021

REACTIONS (6)
  - Coronary artery stenosis [Unknown]
  - Arrhythmia [Unknown]
  - Ventricular tachycardia [Unknown]
  - Chest pain [Unknown]
  - Hot flush [Unknown]
  - Dizziness [Unknown]

NARRATIVE: CASE EVENT DATE: 20251009
